FAERS Safety Report 21059061 (Version 1)
Quarter: 2022Q3

REPORT INFORMATION
  Report Type: Spontaneous
  Country: US (occurrence: US)
  Receive Date: 20220708
  Receipt Date: 20220708
  Transmission Date: 20221027
  Serious: No
  Sender: FDA-Public Use
  Company Number: US-Sunny_Pharmtech-USA-POI0573202100266

PATIENT
  Age: 45 Year
  Sex: Female

DRUGS (1)
  1. NITROFURANTOIN [Suspect]
     Active Substance: NITROFURANTOIN
     Indication: Urinary tract infection
     Dosage: TAKE FOR 10 DAYS
     Route: 048
     Dates: start: 20210701

REACTIONS (4)
  - Nausea [Recovering/Resolving]
  - Abdominal pain [Recovering/Resolving]
  - Vaginal haemorrhage [Recovering/Resolving]
  - Abnormal faeces [Recovering/Resolving]

NARRATIVE: CASE EVENT DATE: 20210701
